FAERS Safety Report 17174041 (Version 7)
Quarter: 2025Q1

REPORT INFORMATION
  Report Type: Spontaneous
  Country: US (occurrence: US)
  Receive Date: 20191219
  Receipt Date: 20250117
  Transmission Date: 20250408
  Serious: Yes (Hospitalization, Other)
  Sender: PFIZER
  Company Number: US-PFIZER INC-2019546631

PATIENT
  Age: 50 Year
  Sex: Female
  Weight: 84 kg

DRUGS (1)
  1. XELJANZ [Suspect]
     Active Substance: TOFACITINIB CITRATE
     Indication: Colitis ulcerative
     Dosage: 10 MG, 2X/DAY
     Dates: start: 2019

REACTIONS (4)
  - Systemic lupus erythematosus [Unknown]
  - Dupuytren^s contracture [Unknown]
  - Communication disorder [Unknown]
  - Illness [Unknown]

NARRATIVE: CASE EVENT DATE: 20221107
